FAERS Safety Report 8536202-2 (Version None)
Quarter: 2012Q3

REPORT INFORMATION
  Report Type: 
  Country: None (occurrence: None)
  Receive Date: 20120725
  Receipt Date: 20120716
  Transmission Date: 20120928
  Serious: Yes (Other)
  Sender: FDA-Public Use
  Company Number: DE-JNJFOC-20120710287

PATIENT

DRUGS (4)
  1. SPORANOX [Suspect]
     Indication: ANTIFUNGAL PROPHYLAXIS
     Route: 048
  2. SPORANOX [Suspect]
     Route: 042
  3. CHEMOTHERAPY [Suspect]
     Indication: MYELODYSPLASTIC SYNDROME
     Route: 065
  4. CHEMOTHERAPY [Suspect]
     Indication: MYELOID LEUKAEMIA
     Route: 065

REACTIONS (1)
  - PNEUMOCYSTIS JIROVECI PNEUMONIA [None]
